FAERS Safety Report 14590649 (Version 2)
Quarter: 2018Q2

REPORT INFORMATION
  Report Type: Spontaneous
  Country: US (occurrence: US)
  Receive Date: 20180302
  Receipt Date: 20180411
  Transmission Date: 20180711
  Serious: No
  Sender: FDA-Public Use
  Company Number: US-009507513-1802USA001684

PATIENT
  Age: 63 Year
  Sex: Male

DRUGS (2)
  1. ASMANEX [Suspect]
     Active Substance: MOMETASONE FUROATE
     Indication: WHEEZING
     Dosage: UNK
     Route: 055
     Dates: start: 201710
  2. ASMANEX [Suspect]
     Active Substance: MOMETASONE FUROATE
     Dosage: 2 PUFFS/ TWICE A DAY/ HE USUALLY USED IT ONCE A DAY
     Route: 055

REACTIONS (10)
  - Circumstance or information capable of leading to medication error [Unknown]
  - Drug dose omission [Unknown]
  - Intentional product misuse [Unknown]
  - Product container issue [Unknown]
  - Product use in unapproved indication [Unknown]
  - Expired product administered [Unknown]
  - Incorrect dose administered [Unknown]
  - Product container issue [Unknown]
  - Wheezing [Unknown]
  - No adverse event [Unknown]

NARRATIVE: CASE EVENT DATE: 201710
